FAERS Safety Report 15261563 (Version 1)
Quarter: 2018Q3

REPORT INFORMATION
  Report Type: Spontaneous
  Country: SG (occurrence: SG)
  Receive Date: 20180809
  Receipt Date: 20180809
  Transmission Date: 20181010
  Serious: Yes (Hospitalization, Other)
  Sender: FDA-Public Use
  Company Number: SG-SYNTHON BV-NL01PV18_47214

PATIENT
  Age: 75 Year
  Sex: Male

DRUGS (12)
  1. ACETYLSALICYLIC ACID [Concomitant]
     Active Substance: ASPIRIN
     Dosage: UNK
  2. KETOPROFEN. [Concomitant]
     Active Substance: KETOPROFEN
     Indication: MUSCULOSKELETAL PAIN
     Dosage: PLASTER
  3. BUDESONIDE W/FORMOTEROL [Concomitant]
     Active Substance: BUDESONIDE\FORMOTEROL
     Dosage: INHALER
  4. LACTULOSE. [Concomitant]
     Active Substance: LACTULOSE
     Dosage: UNK
  5. TAMSULOSIN [Suspect]
     Active Substance: TAMSULOSIN
     Dosage: UNK
     Route: 048
     Dates: start: 201412
  6. IPRATROPIUM [Concomitant]
     Active Substance: IPRATROPIUM
     Dosage: INHALER
  7. PARACETAMOL [Concomitant]
     Active Substance: ACETAMINOPHEN
     Indication: MUSCULOSKELETAL PAIN
     Dosage: UNK
  8. CASSIA SENNA [Concomitant]
     Active Substance: HERBALS\SENNOSIDES
     Dosage: UNK
  9. SIMVASTATIN. [Concomitant]
     Active Substance: SIMVASTATIN
     Dosage: UNK
  10. BETAMETHASONE VALERATE. [Concomitant]
     Active Substance: BETAMETHASONE VALERATE
     Dosage: 0.025 %, UNK
  11. ETORICOXIB. [Concomitant]
     Active Substance: ETORICOXIB
     Indication: MUSCULOSKELETAL PAIN
     Dosage: UNK
  12. FAMOTIDINE. [Concomitant]
     Active Substance: FAMOTIDINE
     Dosage: UNK

REACTIONS (1)
  - Photosensitivity reaction [Recovered/Resolved]
